FAERS Safety Report 5509036-0 (Version None)
Quarter: 2007Q4

REPORT INFORMATION
  Report Type: 
  Country: None (occurrence: None)
  Receive Date: 20071107
  Receipt Date: 20071031
  Transmission Date: 20080405
  Serious: Yes (Other)
  Sender: FDA-Public Use
  Company Number: US-JNJFOC-20071100624

PATIENT
  Age: 12 Year
  Sex: Female
  Weight: 53.07 kg

DRUGS (5)
  1. INVEGA [Suspect]
     Indication: SCHIZOPHRENIA
     Route: 048
     Dates: start: 20070701
  2. INVEGA [Suspect]
     Indication: BIPOLAR DISORDER
     Route: 048
     Dates: start: 20070701
  3. KEPPRA [Concomitant]
     Indication: BIPOLAR DISORDER
     Route: 048
     Dates: start: 20070601
  4. VITAMIN CAP [Concomitant]
     Indication: NUTRITIONAL SUPPORT
     Route: 048
  5. METADATE CD [Concomitant]
     Indication: ATTENTION DEFICIT/HYPERACTIVITY DISORDER
     Route: 048

REACTIONS (2)
  - HYPOTHYROIDISM [None]
  - WEIGHT INCREASED [None]
